FAERS Safety Report 5048810-4 (Version None)
Quarter: 2006Q3

REPORT INFORMATION
  Report Type: 
  Country: None (occurrence: None)
  Receive Date: 20060706
  Receipt Date: 20060629
  Transmission Date: 20061208
  Serious: Yes (Death)
  Sender: FDA-Public Use
  Company Number: THQ2005A00466

PATIENT
  Age: 78 Year
  Sex: Female

DRUGS (10)
  1. LANSOPRAZOLE [Suspect]
     Dosage: 15 MG PER ORAL
     Route: 048
  2. SPIRIVA [Suspect]
     Indication: CHRONIC OBSTRUCTIVE PULMONARY DISEASE
     Dosage: 18 MCG (18 MCG, 1 IN 1 D) INHALATION
     Route: 055
  3. DEXAMETHASONE TAB [Suspect]
     Dosage: 4 MG (3 IN 1 D) PER ORAL
     Route: 048
  4. LACTULOSE (SOLUTION) [Suspect]
     Dosage: (10 - 20 ML TWICE DAILY, 3.4 G/5 ML)
  5. ACETAMINOPHEN [Suspect]
     Dosage: 4 G (1 G, 4 IN 1 D) PER ORAL
     Route: 048
  6. QUININE SULFATE [Suspect]
     Dosage: 1 IN 1 D PER ORAL
     Route: 048
  7. SALBUTAMOL [Suspect]
     Dosage: 5 MG/2.5 ML FOUR TIMES DAILY INHALATION
     Route: 055
  8. SENNA ALEXANDRINA [Suspect]
     Dosage: 1 - 2 ONCE A NIGHT
  9. SERETIDE (FLUTICASONE PROPIONATE W/SALMETEROL) [Suspect]
     Dosage: 2 IN 1 D INHALATION
     Route: 055
  10. AQUEOUS [Concomitant]

REACTIONS (1)
  - NON-HODGKIN'S LYMPHOMA [None]
